FAERS Safety Report 15489333 (Version 1)
Quarter: 2018Q4

REPORT INFORMATION
  Report Type: Spontaneous
  Country: US (occurrence: US)
  Receive Date: 20181011
  Receipt Date: 20181011
  Transmission Date: 20190205
  Serious: Yes (Other)
  Sender: FDA-Public Use
  Company Number: US-JNJFOC-20181006749

PATIENT
  Sex: Male
  Weight: 72.58 kg

DRUGS (17)
  1. PREZISTA [Suspect]
     Active Substance: DARUNAVIR ETHANOLATE
     Indication: HIV INFECTION
     Route: 048
     Dates: start: 2013, end: 2018
  2. L GLUTAMINE [Concomitant]
     Active Substance: GLUTAMINE
     Dosage: EVERY 3RD OR 4TH DAY
     Route: 065
  3. DIAZEPAM. [Concomitant]
     Active Substance: DIAZEPAM
     Route: 065
  4. UBIQUINOL [Concomitant]
     Active Substance: UBIQUINOL
     Dosage: EVERY 3RD OR 4TH DAY
     Route: 065
  5. MARIJUANA [Concomitant]
     Active Substance: CANNABIS SATIVA SUBSP. INDICA TOP
     Route: 048
  6. INTELENCE [Suspect]
     Active Substance: ETRAVIRINE
     Indication: HIV INFECTION
     Route: 048
     Dates: start: 2013, end: 2018
  7. NORVIR [Suspect]
     Active Substance: RITONAVIR
     Indication: HIV INFECTION
     Route: 065
     Dates: start: 2013, end: 2018
  8. ISENTRESS [Concomitant]
     Active Substance: RALTEGRAVIR POTASSIUM
     Route: 065
     Dates: start: 2013
  9. ACETYL L CARNITINE [Concomitant]
     Dosage: EVERY 3RD OR 4TH DAY
     Route: 065
  10. DRONABINOL. [Concomitant]
     Active Substance: DRONABINOL
     Route: 065
  11. FIORINAL [Concomitant]
     Active Substance: ASPIRIN\BUTALBITAL\CAFFEINE
     Dosage: TWICE A WEEK
     Route: 065
  12. ALPHA LIPOIC SUSTAIN [Concomitant]
     Dosage: EVERY 3RD OR 4TH DAY
     Route: 065
  13. ALPRAZOLAM. [Concomitant]
     Active Substance: ALPRAZOLAM
     Route: 065
  14. VITAMIN B12 [Concomitant]
     Active Substance: CYANOCOBALAMIN
     Dosage: EVERY 3RD OR 4TH DAY
     Route: 065
  15. CETIRIZINE [Concomitant]
     Active Substance: CETIRIZINE HYDROCHLORIDE
     Route: 048
  16. N-ACETYLCYSTEINE [Concomitant]
     Active Substance: ACETYLCYSTEINE
     Dosage: EVERY 3RD OR 4TH DAY
     Route: 065
  17. VITAMIN B12 [Concomitant]
     Active Substance: CYANOCOBALAMIN
     Route: 048

REACTIONS (5)
  - Lymphoma [Unknown]
  - Blood HIV RNA [Unknown]
  - Alanine aminotransferase increased [Unknown]
  - Infection [Unknown]
  - Aspartate aminotransferase increased [Unknown]

NARRATIVE: CASE EVENT DATE: 2015
